FAERS Safety Report 19815192 (Version 1)
Quarter: 2021Q3

REPORT INFORMATION
  Report Type: Spontaneous
  Country: US (occurrence: US)
  Receive Date: 20210909
  Receipt Date: 20210909
  Transmission Date: 20211014
  Serious: Yes (Death, Other)
  Sender: FDA-Public Use
  Company Number: US-SA-2021SA296615

PATIENT

DRUGS (1)
  1. ZANTAC [Suspect]
     Active Substance: RANITIDINE HYDROCHLORIDE
     Dates: start: 199601, end: 201808

REACTIONS (1)
  - Bladder cancer [Fatal]

NARRATIVE: CASE EVENT DATE: 201807
